FAERS Safety Report 7635579-X (Version None)
Quarter: 2011Q3

REPORT INFORMATION
  Report Type: 
  Country: None (occurrence: None)
  Receive Date: 20110726
  Receipt Date: 20110712
  Transmission Date: 20111222
  Serious: Yes (Death, Hospitalization, Other)
  Sender: FDA-Public Use
  Company Number: PHHY2010NZ53929

PATIENT
  Sex: Female

DRUGS (1)
  1. CLOZAPINE [Suspect]
     Indication: SCHIZOPHRENIA
     Dates: start: 19980824

REACTIONS (10)
  - BLOOD SODIUM DECREASED [None]
  - SEDATION [None]
  - ACCIDENTAL DEATH [None]
  - SUDDEN DEATH [None]
  - CONFUSIONAL STATE [None]
  - INTESTINAL DILATATION [None]
  - FLUID RETENTION [None]
  - BLOOD POTASSIUM DECREASED [None]
  - DEHYDRATION [None]
  - CONSTIPATION [None]
